FAERS Safety Report 9226451 (Version 1)
Quarter: 2013Q2

REPORT INFORMATION
  Report Type: Spontaneous
  Country: IN (occurrence: IN)
  Receive Date: 20130411
  Receipt Date: 20130411
  Transmission Date: 20140414
  Serious: Yes (Other)
  Sender: FDA-Public Use
  Company Number: IN-BAXTER-2013BAX012604

PATIENT
  Age: 7 Month
  Sex: Male

DRUGS (11)
  1. HUMAN IMMUNOGLOBULIN IVIG, TRIPLE VIRALLY REDUCED (TVR) SOLUTION FOR I [Suspect]
     Indication: KAWASAKI^S DISEASE
     Route: 042
  2. HUMAN IMMUNOGLOBULIN IVIG, TRIPLE VIRALLY REDUCED (TVR) SOLUTION FOR I [Suspect]
     Route: 042
  3. HUMAN IMMUNOGLOBULIN IVIG, TRIPLE VIRALLY REDUCED (TVR) SOLUTION FOR I [Suspect]
     Route: 042
  4. METHYLPREDNISOLONE [Concomitant]
     Indication: KAWASAKI^S DISEASE
     Route: 065
  5. INFLIXIMAB [Concomitant]
     Indication: KAWASAKI^S DISEASE
     Route: 065
  6. WARFARIN [Concomitant]
     Indication: PRODUCT USED FOR UNKNOWN INDICATION
     Route: 065
  7. ABCIXIMAB [Concomitant]
     Indication: PRODUCT USED FOR UNKNOWN INDICATION
     Dosage: 24 HOUR INFUSION
     Route: 042
  8. CLOPIDOGREL [Concomitant]
     Indication: PRODUCT USED FOR UNKNOWN INDICATION
     Route: 065
  9. ASPIRIN [Concomitant]
     Indication: PRODUCT USED FOR UNKNOWN INDICATION
     Dosage: HIGH DOSE
  10. ASPIRIN [Concomitant]
     Dosage: LOW DOSE
  11. PREDNISOLONE [Concomitant]
     Indication: PRODUCT USED FOR UNKNOWN INDICATION
     Route: 048

REACTIONS (1)
  - Drug ineffective [Not Recovered/Not Resolved]
